FAERS Safety Report 23751644 (Version 1)
Quarter: 2024Q2

REPORT INFORMATION
  Report Type: Spontaneous
  Country: NL (occurrence: NL)
  Receive Date: 20240417
  Receipt Date: 20240417
  Transmission Date: 20240716
  Serious: Yes (Other)
  Sender: FDA-Public Use
  Company Number: None

PATIENT
  Age: 48 Year
  Sex: Female
  Weight: 74 kg

DRUGS (6)
  1. DOXYCYCLINE [Suspect]
     Active Substance: DOXYCYCLINE
     Indication: Pneumonia
     Dosage: 1X PER DAY 1 PIECE
  2. DOXYCYCLINE [Suspect]
     Active Substance: DOXYCYCLINE
     Dosage: PER DAY 1 PIECE, 1ST DAY 2 PIECES, CURE OF 8 TABLETS
     Dates: start: 20240320
  3. CODEINE [Suspect]
     Active Substance: CODEINE
     Dosage: TABLET, 10 MG (MILLIGRAMS)
     Dates: start: 20240320
  4. RIVOTRIL [Concomitant]
     Active Substance: CLONAZEPAM
     Dosage: TABLET, 0.5 MG (MILLIGRAMS)
  5. CITALOPRAM [Concomitant]
     Active Substance: CITALOPRAM\CITALOPRAM HYDROBROMIDE
     Dosage: COATED TABLET, 30 MG (MILLIGRAMS)
  6. LEVOTHYROXINE SODIUM [Concomitant]
     Active Substance: LEVOTHYROXINE SODIUM
     Dosage: TABLET, 150 UG (MICROGRAMS)

REACTIONS (3)
  - Increased tendency to bruise [Recovering/Resolving]
  - Aphthous ulcer [Not Recovered/Not Resolved]
  - Glossitis [Not Recovered/Not Resolved]
